FAERS Safety Report 8435730-8 (Version None)
Quarter: 2012Q2

REPORT INFORMATION
  Report Type: 
  Country: None (occurrence: None)
  Receive Date: 20120614
  Receipt Date: 20120611
  Transmission Date: 20120825
  Serious: No
  Sender: FDA-Public Use
  Company Number: US-PFIZER INC-2012140753

PATIENT
  Sex: Male

DRUGS (4)
  1. ALPRAZOLAM [Suspect]
     Indication: ANXIETY
     Dosage: 0.5 MG, 2X/DAY
     Dates: start: 19960101
  2. ALPRAZOLAM [Suspect]
     Dosage: UNK
  3. ALPRAZOLAM [Suspect]
     Indication: PANIC DISORDER
     Dosage: 1 MG, 2X/DAY
  4. ALPRAZOLAM [Suspect]
     Dosage: 4 MG, 4X/DAY

REACTIONS (4)
  - PANIC DISORDER [None]
  - ANXIETY [None]
  - GENERAL PHYSICAL HEALTH DETERIORATION [None]
  - DRUG EFFECT DECREASED [None]
